FAERS Safety Report 23511384 (Version 1)
Quarter: 2024Q1

REPORT INFORMATION
  Report Type: Report from Study
  Country: NL (occurrence: NL)
  Receive Date: 20240212
  Receipt Date: 20240212
  Transmission Date: 20240409
  Serious: Yes (Other)
  Sender: FDA-Public Use
  Company Number: NL-UCBSA-2023052825

PATIENT
  Age: 65 Year
  Sex: Female

DRUGS (2)
  1. EVENITY [Suspect]
     Active Substance: ROMOSOZUMAB-AQQG
     Indication: Osteoporosis
     Dosage: 210 MILLIGRAM, MONTHLY (QM)
     Route: 065
     Dates: start: 20230823
  2. EVENITY [Suspect]
     Active Substance: ROMOSOZUMAB-AQQG
     Dosage: 210 MILLIGRAM, MONTHLY (QM)
     Route: 065

REACTIONS (6)
  - Spinal compression fracture [Not Recovered/Not Resolved]
  - Fatigue [Recovered/Resolved]
  - Injection site vesicles [Recovered/Resolved]
  - Paraesthesia [Recovered/Resolved]
  - Injection site hypersensitivity [Recovered/Resolved]
  - Headache [Recovered/Resolved]

NARRATIVE: CASE EVENT DATE: 20230823
